FAERS Safety Report 9481891 (Version 2)
Quarter: 2013Q3

REPORT INFORMATION
  Report Type: Spontaneous
  Country: FR (occurrence: FR)
  Receive Date: 20130828
  Receipt Date: 20130828
  Transmission Date: 20140515
  Serious: Yes (Hospitalization)
  Sender: FDA-Public Use
  Company Number: FR-009507513-1307FRA005808

PATIENT
  Age: 93 Year
  Sex: Female
  Weight: 57 kg

DRUGS (4)
  1. SINEMET 100 MG / 10 MG COMPRIME SECABLE [Suspect]
     Indication: PARKINSON^S DISEASE
     Dosage: 1.5 DF, QD
  2. SINEMET 100 MG / 10 MG COMPRIME SECABLE [Suspect]
     Dosage: 5 DF, QD
     Dates: start: 20130804
  3. FLECAINE [Concomitant]
  4. KARDEGIC [Concomitant]

REACTIONS (4)
  - Loss of consciousness [Unknown]
  - Tremor [Not Recovered/Not Resolved]
  - Palpitations [Not Recovered/Not Resolved]
  - Fall [Unknown]
